FAERS Safety Report 16960332 (Version 2)
Quarter: 2019Q4

REPORT INFORMATION
  Report Type: Spontaneous
  Country: US (occurrence: US)
  Receive Date: 20191025
  Receipt Date: 20191107
  Transmission Date: 20200122
  Serious: No
  Sender: FDA-Public Use
  Company Number: US-PFIZER INC-2019458331

PATIENT
  Sex: Male

DRUGS (2)
  1. GABAPENTIN. [Suspect]
     Active Substance: GABAPENTIN
     Indication: NEUROPATHY PERIPHERAL
     Dosage: 2100 MG, DAILY (600 IN THE MORNING, 900 IN AFTERNOON AND 600 AT NIGHT)
  2. LORAZEPAM. [Concomitant]
     Active Substance: LORAZEPAM
     Indication: PALPITATIONS
     Dosage: 2 MG, AS NEEDED
     Route: 048

REACTIONS (3)
  - Off label use [Unknown]
  - Product use in unapproved indication [Unknown]
  - Genital rash [Not Recovered/Not Resolved]
